FAERS Safety Report 8161487-4 (Version None)
Quarter: 2012Q1

REPORT INFORMATION
  Report Type: 
  Country: None (occurrence: None)
  Receive Date: 20120224
  Receipt Date: 20120216
  Transmission Date: 20120608
  Serious: Yes (Other)
  Sender: FDA-Public Use
  Company Number: US-COVIDIEN/TYCO HEALTHCARE/MALLINCKRODT-T201200646

PATIENT
  Age: 70 Year
  Sex: Female

DRUGS (6)
  1. CYCLOBENZAPRINE [Suspect]
     Indication: MUSCLE SPASMS
     Dosage: 10 MG, TID
     Route: 048
  2. CEFAZOLIN [Concomitant]
     Indication: INFECTION
     Dosage: UNK
  3. GENERAL ANESTHESIA [Concomitant]
     Indication: SURGERY
  4. NARDIL [Suspect]
     Indication: DEPRESSION
     Dosage: 15 MG, QID
  5. ACETAMINOPHEN [Concomitant]
     Route: 048
  6. OXYCODONE HCL [Suspect]
     Indication: PROCEDURAL PAIN
     Dosage: UNK, PRN
     Route: 048

REACTIONS (1)
  - SEROTONIN SYNDROME [None]
